FAERS Safety Report 9557766 (Version 1)
Quarter: 2013Q3

REPORT INFORMATION
  Report Type: Report from Study
  Country: CA (occurrence: CA)
  Receive Date: 20130926
  Receipt Date: 20130926
  Transmission Date: 20140515
  Serious: Yes (Other)
  Sender: FDA-Public Use
  Company Number: CA-UCBSA-098006

PATIENT
  Age: 56 Year
  Sex: Female
  Weight: 95 kg

DRUGS (2)
  1. CIMZIA [Suspect]
     Indication: RHEUMATOID ARTHRITIS
     Route: 058
     Dates: start: 20121106
  2. CIMZIA [Suspect]
     Indication: RHEUMATOID ARTHRITIS
     Route: 058
     Dates: start: 20120911, end: 20121009

REACTIONS (2)
  - Wrist fracture [Recovering/Resolving]
  - Tooth infection [Recovering/Resolving]
